FAERS Safety Report 12217933 (Version 1)
Quarter: 2016Q1

REPORT INFORMATION
  Report Type: Spontaneous
  Country: FR (occurrence: FR)
  Receive Date: 20160329
  Receipt Date: 20160329
  Transmission Date: 20160526
  Serious: Yes (Death)
  Sender: FDA-Public Use
  Company Number: FR-PFIZER INC-2016173476

PATIENT
  Age: 88 Year
  Sex: Female

DRUGS (9)
  1. DUPHALAC [Concomitant]
     Active Substance: LACTULOSE
     Dosage: 1 DF, 1X/DAY
     Route: 048
     Dates: start: 20151222, end: 20160102
  2. BISOCE [Suspect]
     Active Substance: BISOPROLOL
     Dosage: 2.5 MG, 2X/DAY
     Route: 048
     Dates: start: 20151228, end: 20160102
  3. LASILIX /00032601/ [Suspect]
     Active Substance: FUROSEMIDE
     Dosage: 40 MG, 1X/DAY
     Route: 048
     Dates: start: 20151214
  4. IMOVANE [Concomitant]
     Active Substance: ZOPICLONE
     Dosage: 3.75 MG, AS NEEDED
     Route: 048
     Dates: start: 20151209
  5. ALDACTONE [Suspect]
     Active Substance: SPIRONOLACTONE
     Indication: CARDIOVASCULAR DISORDER
     Dosage: 12.5 MG, 1X/DAY
     Route: 048
     Dates: start: 20151215, end: 20160102
  6. RAMIPRIL MYLAN [Suspect]
     Active Substance: RAMIPRIL
     Indication: CARDIOVASCULAR DISORDER
     Dosage: 2.5 MG, 2X/DAY
     Route: 048
     Dates: start: 20151122, end: 20160102
  7. PAROXETINE ARROW [Concomitant]
     Active Substance: PAROXETINE\PAROXETINE HYDROCHLORIDE
     Dosage: 20 MG, DAILY
     Route: 048
     Dates: end: 20160102
  8. XARELTO [Suspect]
     Active Substance: RIVAROXABAN
     Indication: ATRIAL FIBRILLATION
     Dosage: 15 MG, 1X/DAY
     Route: 048
     Dates: start: 20151209, end: 20160102
  9. LEVOTHYROX [Concomitant]
     Active Substance: LEVOTHYROXINE
     Indication: HYPOTHYROIDISM
     Dosage: 1.25 DF, 1X/DAY
     Route: 048
     Dates: start: 20151209

REACTIONS (2)
  - Hepatitis fulminant [Fatal]
  - Renal failure [Fatal]

NARRATIVE: CASE EVENT DATE: 20160102
